FAERS Safety Report 15481920 (Version 2)
Quarter: 2018Q4

REPORT INFORMATION
  Report Type: Spontaneous
  Country: JP (occurrence: JP)
  Receive Date: 20181010
  Receipt Date: 20181030
  Transmission Date: 20190205
  Serious: No
  Sender: FDA-Public Use
  Company Number: JP-GLAXOSMITHKLINE-JP2018JPN179879

PATIENT
  Age: 52 Year
  Sex: Female

DRUGS (2)
  1. MONTELUKAST SODIUM. [Concomitant]
     Active Substance: MONTELUKAST SODIUM
     Dosage: UNK
  2. RELVAR ELLIPTA [Suspect]
     Active Substance: FLUTICASONE FUROATE\VILANTEROL TRIFENATATE
     Indication: ASTHMA PROPHYLAXIS
     Dosage: 100 ?G, 1D
     Route: 055
     Dates: start: 201804

REACTIONS (10)
  - Papilloma viral infection [Unknown]
  - Dysgeusia [Unknown]
  - Oropharyngeal pain [Unknown]
  - Product use in unapproved indication [Unknown]
  - Decreased immune responsiveness [Unknown]
  - Dysphonia [Unknown]
  - Candida infection [Unknown]
  - Oropharyngeal discomfort [Unknown]
  - Aptyalism [Unknown]
  - Oral papilloma [Unknown]

NARRATIVE: CASE EVENT DATE: 2018
